FAERS Safety Report 12966339 (Version 1)
Quarter: 2016Q4

REPORT INFORMATION
  Report Type: Spontaneous
  Country: US (occurrence: US)
  Receive Date: 20161121
  Receipt Date: 20161121
  Transmission Date: 20170207
  Serious: Yes (Other)
  Sender: FDA-Public Use
  Company Number: None

PATIENT
  Age: 73 Year
  Sex: Male
  Weight: 92.25 kg

DRUGS (5)
  1. SIMVASTATIN. [Concomitant]
     Active Substance: SIMVASTATIN
  2. XARELTO [Concomitant]
     Active Substance: RIVAROXABAN
  3. VITAMIN C [Concomitant]
     Active Substance: ASCORBIC ACID
  4. PROPAFENONE HCL [Concomitant]
     Active Substance: PROPAFENONE HYDROCHLORIDE
  5. TAMSULOSIN HCL [Suspect]
     Active Substance: TAMSULOSIN
     Indication: INCONTINENCE
     Dosage: QUANTITY:90 CAPSULE(S); DAILY; ORAL ?
     Route: 048
     Dates: start: 20161101, end: 20161121

REACTIONS (2)
  - Dry eye [None]
  - Ejaculation disorder [None]

NARRATIVE: CASE EVENT DATE: 20161115
